FAERS Safety Report 20148756 (Version 7)
Quarter: 2022Q4

REPORT INFORMATION
  Report Type: Other
  Country: CA (occurrence: None)
  Receive Date: 20211204
  Receipt Date: 20221114
  Transmission Date: 20230113
  Serious: No
  Sender: FDA-Public Use
  Company Number: CA-ROCHE-2969714

PATIENT
  Age: 47 Year
  Sex: Male

DRUGS (3)
  1. OCREVUS [Suspect]
     Active Substance: OCRELIZUMAB
     Indication: Relapsing-remitting multiple sclerosis
     Dosage: 300 MG AT DAY 0 AND 14, THEN 600 MG EVERY 6 MONTH
     Route: 042
     Dates: start: 20211117
  2. SINGULAIR [Concomitant]
     Active Substance: MONTELUKAST SODIUM
  3. QUETIAPINE [Concomitant]
     Active Substance: QUETIAPINE

REACTIONS (17)
  - Fatigue [Recovering/Resolving]
  - Lethargy [Recovering/Resolving]
  - Arthropathy [Recovering/Resolving]
  - Musculoskeletal stiffness [Recovering/Resolving]
  - Oral herpes [Recovered/Resolved]
  - Infusion related reaction [Not Recovered/Not Resolved]
  - Chromaturia [Unknown]
  - Yellow skin [Unknown]
  - Headache [Not Recovered/Not Resolved]
  - Arthralgia [Not Recovered/Not Resolved]
  - Pain [Not Recovered/Not Resolved]
  - Musculoskeletal stiffness [Recovered/Resolved]
  - Pain in extremity [Not Recovered/Not Resolved]
  - Neuralgia [Unknown]
  - Sciatica [Unknown]
  - Asthma [Unknown]
  - Blood pressure increased [Unknown]

NARRATIVE: CASE EVENT DATE: 20211206
